FAERS Safety Report 7777698-3 (Version None)
Quarter: 2011Q3

REPORT INFORMATION
  Report Type: 
  Country: None (occurrence: None)
  Receive Date: 20110922
  Receipt Date: 20110919
  Transmission Date: 20111222
  Serious: Yes (Hospitalization, Other)
  Sender: FDA-Public Use
  Company Number: 1000015237

PATIENT
  Age: 53 Year
  Sex: Male

DRUGS (14)
  1. AVAPRO [Concomitant]
  2. CRESTOR [Concomitant]
  3. VALIUM [Concomitant]
  4. ZETIA [Concomitant]
  5. AVALIDE (IRBESARTAN, HYDROCHLORTHIAZIDE) [Concomitant]
  6. VIAGRA [Concomitant]
  7. BYSTOLIC [Suspect]
     Indication: HYPERTENSION
     Dosage: 5 MG (5 MG, 1 IN 1 D), ORAL; 10 MG (10 MG, 1 IN 1 D), ORAL
     Route: 048
     Dates: start: 20100601
  8. BYSTOLIC [Suspect]
     Indication: HYPERTENSION
     Dosage: 5 MG (5 MG, 1 IN 1 D), ORAL; 10 MG (10 MG, 1 IN 1 D), ORAL
     Route: 048
     Dates: start: 20090101, end: 20100601
  9. NORCO (HYDORCODONE, ACETAMINOPHEN) [Concomitant]
  10. BYSTOLIC [Suspect]
     Indication: HYPERTENSION
     Dosage: 15 MG (5 MG, 3 IN 1 D), ORAL;
     Route: 048
     Dates: start: 20110101
  11. BYSTOLIC [Suspect]
     Indication: HYPERTENSION
     Dosage: 10 MG (5 MG, 2 IN 1 D), ORAL; 7.5 MG (2.5 MG, 3 IN 1 D), ORAL
     Route: 048
     Dates: start: 20110101, end: 20110101
  12. BYSTOLIC [Suspect]
     Indication: HYPERTENSION
     Dosage: 10 MG (5 MG, 2 IN 1 D), ORAL; 7.5 MG (2.5 MG, 3 IN 1 D), ORAL
     Route: 048
     Dates: start: 20110101
  13. LASIX [Concomitant]
  14. HYDROCHLOROTHIAZIDE [Concomitant]

REACTIONS (7)
  - DYSURIA [None]
  - CAROTID ARTERY OCCLUSION [None]
  - CONDITION AGGRAVATED [None]
  - ANXIETY [None]
  - HYPOAESTHESIA [None]
  - HEADACHE [None]
  - CORONARY ARTERY OCCLUSION [None]
